FAERS Safety Report 6727547-7 (Version None)
Quarter: 2010Q2

REPORT INFORMATION
  Report Type: 
  Country: None (occurrence: None)
  Receive Date: 20100517
  Receipt Date: 20100504
  Transmission Date: 20101027
  Serious: Yes (Hospitalization)
  Sender: FDA-Public Use
  Company Number: PHHY2010US28913

PATIENT
  Sex: Male
  Weight: 90.703 kg

DRUGS (1)
  1. EXJADE [Suspect]
     Indication: LYMPHOCYTIC LEUKAEMIA
     Dosage: 1625 MG DAILY
     Route: 048
     Dates: start: 20091210

REACTIONS (1)
  - PNEUMONIA [None]
